FAERS Safety Report 13448162 (Version 1)
Quarter: 2017Q2

REPORT INFORMATION
  Report Type: Report from Study
  Country: None (occurrence: FR)
  Receive Date: 20170417
  Receipt Date: 20170417
  Transmission Date: 20170830
  Serious: Yes (Hospitalization, Other)
  Sender: FDA-Public Use
  Company Number: FR-ABBVIE-16P-056-1650394-00

PATIENT
  Age: 68 Year
  Sex: Male

DRUGS (1)
  1. DUODOPA [Suspect]
     Active Substance: CARBIDOPA\LEVODOPA
     Indication: PARKINSON^S DISEASE
     Route: 050
     Dates: start: 20160601

REACTIONS (5)
  - Pneumoperitoneum [Unknown]
  - Device dislocation [Unknown]
  - Stoma site infection [Not Recovered/Not Resolved]
  - Peritonitis [Not Recovered/Not Resolved]
  - Medical device site abscess [Unknown]

NARRATIVE: CASE EVENT DATE: 201606
